FAERS Safety Report 14354296 (Version 3)
Quarter: 2018Q1

REPORT INFORMATION
  Report Type: Spontaneous
  Country: PT (occurrence: PT)
  Receive Date: 20180105
  Receipt Date: 20180312
  Transmission Date: 20180509
  Serious: Yes (Disabling, Other)
  Sender: FDA-Public Use
  Company Number: PT-009507513-1801PRT000089

PATIENT
  Age: 29 Year
  Sex: Female
  Weight: 82 kg

DRUGS (1)
  1. IMPLANON [Suspect]
     Active Substance: ETONOGESTREL
     Indication: CONTRACEPTION
     Dosage: SUBCUTANEOUS APPLICATION/ 1 DF, QD
     Route: 058
     Dates: start: 20171211, end: 20171220

REACTIONS (3)
  - Abscess limb [Recovered/Resolved]
  - Eosinophil percentage decreased [Recovered/Resolved]
  - Cellulitis [Recovered/Resolved]

NARRATIVE: CASE EVENT DATE: 20171212
